FAERS Safety Report 14689681 (Version 4)
Quarter: 2018Q2

REPORT INFORMATION
  Report Type: Report from Study
  Country: US (occurrence: US)
  Receive Date: 20180328
  Receipt Date: 20180511
  Transmission Date: 20180711
  Serious: Yes (Hospitalization, Other)
  Sender: FDA-Public Use
  Company Number: US-GILEAD-2018-0319877

PATIENT
  Age: 21 Year
  Sex: Female

DRUGS (2)
  1. AMBRISENTAN [Suspect]
     Active Substance: AMBRISENTAN
     Indication: PRODUCT USED FOR UNKNOWN INDICATION
     Dosage: 10 MG, QD
     Route: 065
     Dates: start: 20160602
  2. REMODULIN [Suspect]
     Active Substance: TREPROSTINIL
     Indication: PRODUCT USED FOR UNKNOWN INDICATION
     Route: 065

REACTIONS (13)
  - Catheter site pain [Not Recovered/Not Resolved]
  - Urticaria [Unknown]
  - Burning sensation [Unknown]
  - Injection site irritation [Not Recovered/Not Resolved]
  - Headache [Not Recovered/Not Resolved]
  - Catheter site erythema [Unknown]
  - Injection site infection [Unknown]
  - Injection site cellulitis [Unknown]
  - Erythema [Unknown]
  - Peripheral swelling [Unknown]
  - Rash [Unknown]
  - Vomiting [Not Recovered/Not Resolved]
  - Urticaria [Not Recovered/Not Resolved]

NARRATIVE: CASE EVENT DATE: 20180129
